FAERS Safety Report 23244217 (Version 2)
Quarter: 2023Q4

REPORT INFORMATION
  Report Type: Other
  Country: CA (occurrence: None)
  Receive Date: 20231130
  Receipt Date: 20231225
  Transmission Date: 20240110
  Serious: Yes (Other)
  Sender: FDA-Public Use
  Company Number: CA-ROCHE-3460216

PATIENT
  Age: 69 Year
  Sex: Female

DRUGS (8)
  1. ACTEMRA [Suspect]
     Active Substance: TOCILIZUMAB
     Indication: Rheumatoid arthritis
     Route: 058
     Dates: start: 20231116
  2. FOLIC ACID [Concomitant]
     Active Substance: FOLIC ACID
  3. MOMETASONE [Concomitant]
     Active Substance: MOMETASONE
  4. OMEGA 3 [Concomitant]
     Active Substance: CAPSAICIN
  5. CALCIUM [Concomitant]
     Active Substance: CALCIUM
  6. MAGNESIUM [Concomitant]
     Active Substance: MAGNESIUM
  7. METHOTREXATE [Concomitant]
     Active Substance: METHOTREXATE
  8. VENTOLIN [Concomitant]
     Active Substance: ALBUTEROL SULFATE

REACTIONS (2)
  - Lower limb fracture [Unknown]
  - Needle issue [Unknown]

NARRATIVE: CASE EVENT DATE: 20231116
